FAERS Safety Report 17840550 (Version 1)
Quarter: 2020Q2

REPORT INFORMATION
  Report Type: Spontaneous
  Country: IN (occurrence: IN)
  Receive Date: 20200529
  Receipt Date: 20200529
  Transmission Date: 20200714
  Serious: Yes (Other)
  Sender: FDA-Public Use
  Company Number: IN-STRIDES ARCOLAB LIMITED-2020SP006490

PATIENT
  Age: 26 Year
  Sex: Male

DRUGS (1)
  1. DICLOFENAC [Suspect]
     Active Substance: DICLOFENAC
     Indication: LIGAMENT SPRAIN
     Dosage: UNK (RECEIVED IN HIS BUTTOCK)
     Route: 030

REACTIONS (7)
  - Skin plaque [Unknown]
  - Scab [Unknown]
  - Pain of skin [Unknown]
  - Skin necrosis [Unknown]
  - Embolia cutis medicamentosa [Unknown]
  - Skin discolouration [Unknown]
  - Skin haemorrhage [Unknown]
